FAERS Safety Report 13495055 (Version 1)
Quarter: 2017Q2

REPORT INFORMATION
  Report Type: Spontaneous
  Country: CN (occurrence: CN)
  Receive Date: 20170428
  Receipt Date: 20170428
  Transmission Date: 20170830
  Serious: Yes (Hospitalization)
  Sender: FDA-Public Use
  Company Number: CN-APOTEX-2017AP011120

PATIENT
  Age: 30 Year
  Sex: Male

DRUGS (2)
  1. PAXIL [Suspect]
     Active Substance: PAROXETINE HYDROCHLORIDE
     Indication: PRODUCT USED FOR UNKNOWN INDICATION
     Dosage: 1 DF, TID
     Route: 048
     Dates: start: 201507, end: 201507
  2. CITICOLINE [Concomitant]
     Active Substance: CITICOLINE

REACTIONS (6)
  - Feeling cold [Unknown]
  - Body temperature decreased [Unknown]
  - Tinnitus [Unknown]
  - Ear infection [Unknown]
  - Listless [Unknown]
  - Incorrect drug administration duration [Unknown]
